FAERS Safety Report 7642450-6 (Version None)
Quarter: 2011Q3

REPORT INFORMATION
  Report Type: 
  Country: None (occurrence: None)
  Receive Date: 20110728
  Receipt Date: 20110615
  Transmission Date: 20111222
  Serious: No
  Sender: FDA-Public Use
  Company Number: US-MYLANLABS-2011S1011235

PATIENT
  Age: 44 Year
  Sex: Female
  Weight: 74.39 kg

DRUGS (7)
  1. FLEXERIL [Concomitant]
  2. LEVOTHYROXINE SODIUM [Suspect]
     Indication: HYPOTHYROIDISM
     Dates: start: 20110301, end: 20110523
  3. ZYRTEC [Concomitant]
  4. ASPIRIN [Concomitant]
  5. FLONASE [Concomitant]
  6. MOTRIN [Concomitant]
  7. PRILOSEC [Concomitant]

REACTIONS (2)
  - THYROID FUNCTION TEST ABNORMAL [None]
  - FATIGUE [None]
